FAERS Safety Report 9893473 (Version 1)
Quarter: 2014Q1

REPORT INFORMATION
  Report Type: Report from Study
  Country: US (occurrence: US)
  Receive Date: 20140213
  Receipt Date: 20140213
  Transmission Date: 20141002
  Serious: Yes (Hospitalization, Other)
  Sender: FDA-Public Use
  Company Number: US-ASTELLAS-2014US001447

PATIENT
  Age: 76 Year
  Sex: Female

DRUGS (4)
  1. ERLOTINIB TABLET [Suspect]
     Indication: LUNG NEOPLASM MALIGNANT
     Dosage: 150 MG, UID/QD
     Route: 065
     Dates: start: 2009, end: 201402
  2. LEVOTHYROXINE [Concomitant]
     Indication: PRODUCT USED FOR UNKNOWN INDICATION
     Dosage: 0.5 UG, UNKNOWN/D
     Route: 065
  3. BENICAR [Concomitant]
     Indication: BLOOD PRESSURE
     Dosage: 20 MG, UNKNOWN/D
     Route: 065
  4. DILANTIN                           /00017401/ [Concomitant]
     Indication: CONVULSION
     Dosage: UNK
     Route: 065

REACTIONS (7)
  - Hernia [Unknown]
  - Cholecystectomy [Unknown]
  - Pulmonary thrombosis [Not Recovered/Not Resolved]
  - Brain neoplasm malignant [Unknown]
  - Oxygen saturation decreased [Unknown]
  - Dyspnoea [Unknown]
  - Cough [Recovering/Resolving]
